FAERS Safety Report 14336855 (Version 5)
Quarter: 2018Q2

REPORT INFORMATION
  Report Type: Spontaneous
  Country: DE (occurrence: DE)
  Receive Date: 20171229
  Receipt Date: 20180410
  Transmission Date: 20180711
  Serious: Yes (Hospitalization, Other)
  Sender: FDA-Public Use
  Company Number: DE-WEST-WARD PHARMACEUTICALS CORP.-DE-H14001-17-05191

PATIENT
  Age: 88 Year
  Sex: Female
  Weight: 46 kg

DRUGS (3)
  1. AFINITOR [Suspect]
     Active Substance: EVEROLIMUS
     Indication: BREAST CANCER METASTATIC
     Dosage: 5 MG, QD
     Route: 048
     Dates: start: 20130720, end: 20130808
  2. AFINITOR [Suspect]
     Active Substance: EVEROLIMUS
     Indication: CHEMOTHERAPY MULTIPLE AGENTS SYSTEMIC
     Route: 065
  3. EXEMESTANE. [Suspect]
     Active Substance: EXEMESTANE
     Indication: BREAST CANCER METASTATIC
     Dosage: 25 MG, QD
     Route: 048
     Dates: start: 20130720, end: 20130808

REACTIONS (23)
  - Bronchitis [Unknown]
  - Fibrin D dimer increased [Unknown]
  - Blood alkaline phosphatase increased [Unknown]
  - Nausea [Recovered/Resolved]
  - Glutamate dehydrogenase increased [Unknown]
  - Left ventricular failure [Recovered/Resolved]
  - Aspartate aminotransferase increased [Unknown]
  - Blood chloride decreased [Unknown]
  - Blood bilirubin increased [Unknown]
  - Cardiac failure [Recovered/Resolved with Sequelae]
  - Pleural effusion [Recovered/Resolved]
  - Hypervolaemia [Recovered/Resolved]
  - Cardiovascular disorder [Recovered/Resolved]
  - Dyspnoea [Recovered/Resolved]
  - Glomerular filtration rate decreased [Unknown]
  - Gamma-glutamyltransferase increased [Unknown]
  - Amylase decreased [Unknown]
  - White blood cell count increased [Unknown]
  - Emphysema [Unknown]
  - General physical health deterioration [Recovered/Resolved]
  - Alanine aminotransferase increased [Unknown]
  - C-reactive protein increased [Unknown]
  - Platelet count increased [Unknown]

NARRATIVE: CASE EVENT DATE: 20130809
